FAERS Safety Report 4392875-X (Version None)
Quarter: 2004Q3

REPORT INFORMATION
  Report Type: 
  Country: None (occurrence: None)
  Receive Date: 20040708
  Receipt Date: 20040224
  Transmission Date: 20050211
  Serious: Yes (Death, Hospitalization, Disabling)
  Sender: FDA-Public Use
  Company Number: CM-MERCK-0402USA01755

PATIENT
  Age: 40 Year
  Sex: Male

DRUGS (13)
  1. [COMPOSITION UNSPECIFIED] [Concomitant]
     Route: 065
     Dates: start: 20040101
  2. [COMPOSITION UNSPECIFIED] [Concomitant]
     Route: 065
     Dates: start: 20040101
  3. [COMPOSITION UNSPECIFIED] [Concomitant]
     Route: 065
     Dates: start: 20040101
  4. [COMPOSITION UNSPECIFIED] [Concomitant]
     Route: 065
     Dates: start: 20040101
  5. AMPICILLIN [Concomitant]
     Route: 065
     Dates: start: 20040101
  6. CEFTRIAXONE SODIUM [Concomitant]
     Route: 065
     Dates: start: 20040101
  7. CIMETIDINE [Concomitant]
     Route: 065
     Dates: start: 20040101
  8. DEXAMETHASONE [Concomitant]
     Route: 065
     Dates: start: 20040101
  9. GENTAMICIN [Concomitant]
     Route: 065
     Dates: start: 20040101
  10. STROMECTOL [Suspect]
     Route: 048
     Dates: start: 20040215, end: 20040215
  11. MANNITOL [Concomitant]
     Route: 041
     Dates: start: 20040101
  12. NOOTROPYL [Concomitant]
     Route: 065
     Dates: start: 20040101
  13. QUININE [Concomitant]
     Route: 041
     Dates: start: 20040101

REACTIONS (12)
  - ANAEMIA [None]
  - APHASIA [None]
  - ASTHENIA [None]
  - COMA [None]
  - DECUBITUS ULCER [None]
  - DEHYDRATION [None]
  - GAIT DISTURBANCE [None]
  - HEADACHE [None]
  - PNEUMONIA [None]
  - SEPTIC SHOCK [None]
  - URINARY INCONTINENCE [None]
  - WOUND HAEMORRHAGE [None]
